FAERS Safety Report 19816887 (Version 9)
Quarter: 2023Q1

REPORT INFORMATION
  Report Type: Report from Study
  Country: PT (occurrence: PT)
  Receive Date: 20210910
  Receipt Date: 20230123
  Transmission Date: 20230417
  Serious: Yes (Hospitalization, Other)
  Sender: FDA-Public Use
  Company Number: PT-ACTELION-A-CH2019-188750

PATIENT
  Age: 6 Year
  Sex: Female
  Weight: 16 kg

DRUGS (3)
  1. MACITENTAN [Suspect]
     Active Substance: MACITENTAN
     Indication: Pulmonary arterial hypertension
     Route: 048
     Dates: start: 20190104, end: 20190404
  2. FLUTICASONE [Concomitant]
     Active Substance: FLUTICASONE
     Route: 055
     Dates: start: 20190805
  3. OMEPRAZOLE [Concomitant]
     Active Substance: OMEPRAZOLE

REACTIONS (10)
  - Alanine aminotransferase increased [Recovered/Resolved]
  - Pneumonia [Recovered/Resolved]
  - Respiratory tract infection viral [Recovered/Resolved]
  - Right ventricular failure [Recovered/Resolved]
  - Pleural effusion [Recovered/Resolved with Sequelae]
  - Cardiogenic shock [Recovered/Resolved]
  - Tracheal stenosis [Recovered/Resolved with Sequelae]
  - Bronchoscopy [Unknown]
  - Respiratory failure [Recovered/Resolved]
  - Respiratory tract procedural complication [Recovered/Resolved]

NARRATIVE: CASE EVENT DATE: 20190307
